FAERS Safety Report 4852537-9 (Version None)
Quarter: 2005Q4

REPORT INFORMATION
  Report Type: 
  Country: None (occurrence: None)
  Receive Date: 20051130
  Receipt Date: 20051019
  Transmission Date: 20060501
  Serious: No
  Sender: FDA-Public Use
  Company Number: WAES 0510USA07920

PATIENT
  Age: 75 Year
  Sex: Female

DRUGS (6)
  1. ZETIA [Suspect]
     Indication: BLOOD CHOLESTEROL INCREASED
     Dosage: 10 MG/DAILY/PO
     Route: 048
     Dates: start: 20050630, end: 20050910
  2. COSOPT [Concomitant]
  3. MONOPRIL [Concomitant]
  4. PILOPINE HS [Concomitant]
  5. TOPROL-XL [Concomitant]
  6. TRAVATAN [Concomitant]

REACTIONS (1)
  - ASTHENIA [None]
